FAERS Safety Report 9606925 (Version 2)
Quarter: 2013Q4

REPORT INFORMATION
  Report Type: Spontaneous
  Country: US (occurrence: US)
  Receive Date: 20131008
  Receipt Date: 20131008
  Transmission Date: 20140711
  Serious: No
  Sender: FDA-Public Use
  Company Number: US-AMGEN-USASP2013060582

PATIENT
  Age: 76 Year
  Sex: Female
  Weight: 79.82 kg

DRUGS (5)
  1. PROLIA [Suspect]
     Indication: SENILE OSTEOPOROSIS
     Dosage: 60 MG, UNK
     Route: 058
     Dates: start: 201212
  2. GLIPIZIDE [Concomitant]
     Dosage: 10 MG, UNK
     Route: 048
  3. MEVACOR [Concomitant]
     Dosage: 40 MG, UNK
     Route: 048
  4. LISINOPRIL [Concomitant]
  5. MECLIZINE                          /00072801/ [Concomitant]

REACTIONS (2)
  - Temporomandibular joint syndrome [Not Recovered/Not Resolved]
  - Pain in jaw [Not Recovered/Not Resolved]
